FAERS Safety Report 11516353 (Version 1)
Quarter: 2015Q3

REPORT INFORMATION
  Report Type: Spontaneous
  Country: US (occurrence: None)
  Receive Date: 20150916
  Receipt Date: 20150916
  Transmission Date: 20151125
  Serious: No
  Sender: FDA-Public Use
  Company Number: None

PATIENT
  Age: 47 Year
  Sex: Male

DRUGS (1)
  1. HUMIRA [Suspect]
     Active Substance: ADALIMUMAB
     Indication: PRODUCT USED FOR UNKNOWN INDICATION
     Dosage: UNREADABLE
     Route: 048
     Dates: start: 20150430, end: 20150722

REACTIONS (3)
  - Stomatitis [None]
  - Rash [None]
  - Hypoaesthesia oral [None]

NARRATIVE: CASE EVENT DATE: 20150722
